FAERS Safety Report 14574507 (Version 1)
Quarter: 2018Q1

REPORT INFORMATION
  Report Type: Spontaneous
  Country: US (occurrence: US)
  Receive Date: 20180224
  Receipt Date: 20180224
  Transmission Date: 20180509
  Serious: Yes (Other)
  Sender: FDA-Public Use
  Company Number: None

PATIENT
  Sex: Female
  Weight: 81 kg

DRUGS (13)
  1. VITAMIN C [Concomitant]
     Active Substance: ASCORBIC ACID
  2. LICORICE ROOT [Concomitant]
     Active Substance: LICORICE
  3. INSULIN PUMP [Concomitant]
     Active Substance: INSULIN NOS
  4. GLUCOSE MONITOR [Concomitant]
  5. VITAMIN D [Concomitant]
     Active Substance: CHOLECALCIFEROL
  6. COQ10 [Concomitant]
     Active Substance: UBIDECARENONE
  7. CALCIUM [Concomitant]
     Active Substance: CALCIUM
  8. SERTRALINE [Concomitant]
     Active Substance: SERTRALINE HYDROCHLORIDE
  9. NOVOLOG [Suspect]
     Active Substance: INSULIN ASPART
     Indication: TYPE 1 DIABETES MELLITUS
     Dosage: ALL DAY/24HRS;INSULIN PUMP?
     Dates: start: 20180220, end: 20180223
  10. PRENATAL VITAMIN [Concomitant]
     Active Substance: VITAMINS
  11. MAGNESIUM [Concomitant]
     Active Substance: MAGNESIUM
  12. FOLIC ACID. [Concomitant]
     Active Substance: FOLIC ACID
  13. MILK THISTLE [Concomitant]
     Active Substance: DIETARY SUPPLEMENT\HERBALS\MILK THISTLE

REACTIONS (4)
  - Dehydration [None]
  - Drug ineffective [None]
  - Blood glucose increased [None]
  - Product quality issue [None]

NARRATIVE: CASE EVENT DATE: 20180223
